FAERS Safety Report 15190074 (Version 1)
Quarter: 2018Q3

REPORT INFORMATION
  Report Type: Report from Study
  Country: CA (occurrence: CA)
  Receive Date: 20180724
  Receipt Date: 20180724
  Transmission Date: 20181010
  Serious: Yes (Hospitalization, Other)
  Sender: FDA-Public Use
  Company Number: CA-SA-2018SA107594

PATIENT
  Age: 56 Year
  Sex: Male

DRUGS (2)
  1. CABAZITAXEL [Suspect]
     Active Substance: CABAZITAXEL
     Dosage: UNK
     Dates: start: 20180706, end: 20180706
  2. CABAZITAXEL [Suspect]
     Active Substance: CABAZITAXEL
     Indication: PROSTATE CANCER
     Dosage: 25 MG/M2,Q3W
     Route: 042
     Dates: start: 20180406, end: 20180406

REACTIONS (9)
  - Anaemia [Not Recovered/Not Resolved]
  - Neutropenia [Not Recovered/Not Resolved]
  - Asthenia [Recovering/Resolving]
  - Seizure [Recovering/Resolving]
  - Platelet count decreased [Not Recovered/Not Resolved]
  - Myalgia [Recovered/Resolved]
  - Haemorrhagic stroke [Recovering/Resolving]
  - Prostatic specific antigen decreased [Not Recovered/Not Resolved]
  - Fatigue [Recovering/Resolving]

NARRATIVE: CASE EVENT DATE: 20180407
